FAERS Safety Report 11519025 (Version 1)
Quarter: 2015Q3

REPORT INFORMATION
  Report Type: Report from Study
  Country: US (occurrence: US)
  Receive Date: 20150917
  Receipt Date: 20150917
  Transmission Date: 20151125
  Serious: Yes (Other)
  Sender: FDA-Public Use
  Company Number: US-GILEAD-2015-0163995

PATIENT
  Age: 64 Year
  Sex: Male

DRUGS (1)
  1. IDELALISIB [Suspect]
     Active Substance: IDELALISIB
     Indication: CHRONIC LYMPHOCYTIC LEUKAEMIA
     Dosage: 150 MG, UNK
     Route: 048
     Dates: start: 20140917

REACTIONS (8)
  - Skin disorder [Unknown]
  - Meniscus injury [Unknown]
  - Psoriasis [Unknown]
  - Chronic sinusitis [Unknown]
  - Rash [Unknown]
  - Therapeutic response unexpected [Unknown]
  - Arthralgia [Unknown]
  - Sinus operation [Unknown]

NARRATIVE: CASE EVENT DATE: 201410
